FAERS Safety Report 10244665 (Version 3)
Quarter: 2014Q4

REPORT INFORMATION
  Report Type: Spontaneous
  Country: None (occurrence: None)
  Receive Date: 20140617
  Receipt Date: 20141217
  Transmission Date: 20150528
  Serious: No
  Sender: FDA-Public Use
  Company Number: 2014CT000027

PATIENT
  Age: 56 Year
  Sex: Female
  Weight: 91.17 kg

DRUGS (12)
  1. GLIMEPIRIDE. [Concomitant]
     Active Substance: GLIMEPIRIDE
  2. METFORMIN [Concomitant]
     Active Substance: METFORMIN HYDROCHLORIDE
  3. COZAAR [Concomitant]
     Active Substance: LOSARTAN POTASSIUM
  4. SPIRONOLACTONE. [Concomitant]
     Active Substance: SPIRONOLACTONE
  5. ADVIL [Concomitant]
     Active Substance: IBUPROFEN
  6. LANTUS [Concomitant]
     Active Substance: INSULIN GLARGINE
  7. VITAMIN D [Concomitant]
     Active Substance: CHOLECALCIFEROL
  8. KORLYM [Suspect]
     Active Substance: MIFEPRISTONE
     Indication: PITUITARY-DEPENDENT CUSHING^S SYNDROME
     Route: 048
     Dates: start: 20140303
  9. ASPIRIN. [Concomitant]
     Active Substance: ASPIRIN
  10. GLIMEPIRIDE. [Concomitant]
     Active Substance: GLIMEPIRIDE
  11. NOVOLOG [Concomitant]
     Active Substance: INSULIN ASPART
  12. HYDROCHOROTHIAZIDE [Concomitant]

REACTIONS (9)
  - Intentional product misuse [None]
  - Blood glucose increased [None]
  - Weight increased [None]
  - Blood pressure decreased [None]
  - Arthralgia [None]
  - Joint swelling [None]
  - Pain in extremity [None]
  - Urticaria [None]
  - Oedema peripheral [None]

NARRATIVE: CASE EVENT DATE: 201403
